FAERS Safety Report 18711445 (Version 1)
Quarter: 2021Q1

REPORT INFORMATION
  Report Type: Spontaneous
  Country: US (occurrence: US)
  Receive Date: 20210107
  Receipt Date: 20210107
  Transmission Date: 20210419
  Serious: Yes (Other)
  Sender: FDA-Public Use
  Company Number: US-SUN PHARMACEUTICAL INDUSTRIES LTD-2020R1-274478

PATIENT
  Age: 81 Year
  Sex: Male

DRUGS (1)
  1. OCTREOTIDE. [Suspect]
     Active Substance: OCTREOTIDE
     Indication: GASTROINTESTINAL STOMA COMPLICATION
     Dosage: UNK
     Route: 042

REACTIONS (2)
  - Acute kidney injury [Unknown]
  - Drug ineffective [Unknown]
